FAERS Safety Report 22948945 (Version 2)
Quarter: 2023Q4

REPORT INFORMATION
  Report Type: Report from Study
  Country: IT (occurrence: IT)
  Receive Date: 20230915
  Receipt Date: 20231028
  Transmission Date: 20240110
  Serious: Yes (Other)
  Sender: FDA-Public Use
  Company Number: None

PATIENT
  Age: 1 Year
  Sex: Female
  Weight: 11 kg

DRUGS (3)
  1. VINCRISTINE [Suspect]
     Active Substance: VINCRISTINE
     Indication: Aesthesioneuroblastoma
     Dosage: .75 MILLIGRAM DAILY;
     Dates: start: 20230802, end: 20230802
  2. COSMEGEN [Suspect]
     Active Substance: DACTINOMYCIN
     Indication: Aesthesioneuroblastoma
     Dosage: .75 MILLIGRAM DAILY;
     Dates: start: 20230802, end: 20230802
  3. IFOSFAMIDE [Suspect]
     Active Substance: IFOSFAMIDE
     Indication: Aesthesioneuroblastoma
     Dosage: 1500 MILLIGRAM DAILY;
     Dates: start: 20230802, end: 20230803

REACTIONS (4)
  - Neutropenia [Recovered/Resolved]
  - Pancytopenia [Recovered/Resolved]
  - Leukopenia [Recovered/Resolved]
  - Anaemia [Recovering/Resolving]

NARRATIVE: CASE EVENT DATE: 20230809
